FAERS Safety Report 8244764-8 (Version None)
Quarter: 2012Q1

REPORT INFORMATION
  Report Type: 
  Country: None (occurrence: None)
  Receive Date: 20120329
  Receipt Date: 20110323
  Transmission Date: 20120608
  Serious: No
  Sender: FDA-Public Use
  Company Number: US-MYLANLABS-2011S1006240

PATIENT
  Age: 36 Year
  Sex: Male

DRUGS (7)
  1. TRILEPTAL [Concomitant]
     Route: 048
  2. DURAGESIC-100 [Suspect]
     Indication: BACK PAIN
     Dosage: Q48HR
     Route: 062
     Dates: start: 20020101, end: 20050101
  3. FENTANYL-100 [Suspect]
     Indication: BACK PAIN
     Dosage: CHANGED Q48HR
     Route: 062
     Dates: start: 20050101
  4. PAXIL [Concomitant]
     Route: 048
  5. NORTRIPTYLINE HCL [Concomitant]
     Route: 048
  6. LYRICA [Concomitant]
     Route: 048
  7. OXYCODONE HCL [Concomitant]
     Route: 048

REACTIONS (4)
  - SENSORY DISTURBANCE [None]
  - NERVOUSNESS [None]
  - HYPERHIDROSIS [None]
  - INSOMNIA [None]
